FAERS Safety Report 16782768 (Version 1)
Quarter: 2019Q3

REPORT INFORMATION
  Report Type: Spontaneous
  Country: DE (occurrence: DE)
  Receive Date: 20190906
  Receipt Date: 20190906
  Transmission Date: 20191005
  Serious: Yes (Other)
  Sender: FDA-Public Use
  Company Number: DE-B.I. PHARMACEUTICALS,INC./RIDGEFIELD-2019-12-100070

PATIENT
  Age: 58 Year
  Sex: Female

DRUGS (2)
  1. CATAPRES [Suspect]
     Active Substance: CLONIDINE HYDROCHLORIDE
     Indication: NEURALGIA
     Dosage: 22.343 MCG,
     Route: 037
  2. MORPHINE SULFATE. [Suspect]
     Active Substance: MORPHINE SULFATE
     Indication: NEURALGIA
     Dosage: 52.624 MG,
     Route: 037

REACTIONS (7)
  - Muscle twitching [Unknown]
  - Back pain [Unknown]
  - Myoclonus [Recovered/Resolved]
  - Nausea [Unknown]
  - Retrograde amnesia [Unknown]
  - Drug withdrawal syndrome [Unknown]
  - Altered state of consciousness [Unknown]
